FAERS Safety Report 7361025 (Version 4)
Quarter: 2013Q4

REPORT INFORMATION
  Report Type: Spontaneous
  Country: US (occurrence: US)
  Receive Date: 20100421
  Receipt Date: 20131220
  Transmission Date: 20140711
  Serious: Yes (Hospitalization)
  Sender: FDA-Public Use
  Company Number: US-BAYER-201019647NA

PATIENT
  Age: 19 Year
  Sex: Female
  Weight: 70 kg

DRUGS (12)
  1. YAZ [Suspect]
     Indication: ORAL CONTRACEPTION
     Route: 048
  2. ANTIMIGRAINE PREPARATIONS [Concomitant]
     Dosage: UNK
     Dates: start: 2008, end: 2010
  3. VITAMIN C [Concomitant]
     Dosage: UNK
     Dates: start: 2007, end: 2010
  4. IBUPROFEN [Concomitant]
     Dosage: UNK
     Dates: start: 2005, end: 2010
  5. PREVACID [Concomitant]
     Indication: GASTROOESOPHAGEAL REFLUX DISEASE
     Dosage: 30 MG, UNK
     Route: 048
  6. CELEBREX [Concomitant]
     Indication: BACK PAIN
     Dosage: 100 MG, UNK
     Route: 048
     Dates: start: 200806
  7. TRAMADOL [Concomitant]
     Dosage: 50 MG, UNK
     Route: 048
     Dates: start: 20091125
  8. HYDROCODONE W/APAP [Concomitant]
     Dosage: UNK
     Route: 048
     Dates: start: 20091204
  9. ZOFRAN [Concomitant]
     Dosage: 4 MG, UNK
     Dates: start: 20091122
  10. TORADOL [Concomitant]
     Dosage: 60 MG, UNK
     Dates: start: 20091122
  11. PHENERGAN [Concomitant]
     Dosage: UNK
  12. CIPROFLOXACIN [Concomitant]
     Dosage: 500 MG 2 TIMES DAILY
     Route: 048

REACTIONS (4)
  - Gallbladder disorder [None]
  - Abdominal pain [None]
  - Cholecystitis chronic [None]
  - Biliary dyskinesia [None]
